FAERS Safety Report 8207257-X (Version None)
Quarter: 2012Q1

REPORT INFORMATION
  Report Type: 
  Country: None (occurrence: None)
  Receive Date: 20120314
  Receipt Date: 20120309
  Transmission Date: 20120608
  Serious: Yes (Other)
  Sender: FDA-Public Use
  Company Number: US-PFIZER INC-2012040603

PATIENT
  Sex: Female

DRUGS (5)
  1. CHANTIX [Suspect]
     Indication: SMOKING CESSATION THERAPY
     Dosage: UNK
     Route: 048
     Dates: start: 20100101
  2. CHANTIX [Suspect]
     Dosage: UNK
     Route: 048
     Dates: start: 20120213
  3. PREMPRO [Concomitant]
     Dosage: UNK
  4. ALBUTEROL [Concomitant]
     Dosage: PRN
  5. VALTREX [Concomitant]
     Dosage: UNK

REACTIONS (1)
  - DEPRESSION [None]
